FAERS Safety Report 9983275 (Version 1)
Quarter: 2014Q1

REPORT INFORMATION
  Report Type: Spontaneous
  Country: IN (occurrence: IN)
  Receive Date: 20140307
  Receipt Date: 20140307
  Transmission Date: 20141002
  Serious: Yes (Other)
  Sender: FDA-Public Use
  Company Number: IN-ABBVIE-14P-078-1207594-00

PATIENT
  Sex: 0

DRUGS (2)
  1. DEXMEDETOMIDINE [Suspect]
     Indication: NERVE BLOCK
  2. BUPIVACAINE [Suspect]
     Indication: NERVE BLOCK
     Dosage: 30 ML OF 0.325%

REACTIONS (1)
  - Bradycardia [Recovered/Resolved]
